FAERS Safety Report 9151859 (Version 2)
Quarter: 2013Q2

REPORT INFORMATION
  Report Type: Spontaneous
  Country: US (occurrence: US)
  Receive Date: 20130308
  Receipt Date: 20130417
  Transmission Date: 20140414
  Serious: Yes (Death, Life-Threatening, Hospitalization, Disabling)
  Sender: FDA-Public Use
  Company Number: US-GLAXOSMITHKLINE-A1015160A

PATIENT
  Age: 71 Year
  Sex: Female
  Weight: 66.1 kg

DRUGS (3)
  1. HYCAMTIN [Suspect]
     Indication: SMALL CELL LUNG CANCER RECURRENT
     Dosage: 1MG EVERY 28 DAYS
     Route: 048
     Dates: start: 201206, end: 20130202
  2. OXYCODONE [Concomitant]
     Indication: PAIN
  3. OXYCONTIN [Concomitant]
     Indication: PAIN

REACTIONS (44)
  - Small cell lung cancer recurrent [Fatal]
  - Metastases to spine [Unknown]
  - Spinal compression fracture [Unknown]
  - Pancytopenia [Unknown]
  - Bone marrow failure [Unknown]
  - Respiratory distress [Unknown]
  - Lobar pneumonia [Unknown]
  - Platelet transfusion [Unknown]
  - Cough [Not Recovered/Not Resolved]
  - Dyspnoea [Recovering/Resolving]
  - Productive cough [Unknown]
  - Haemoptysis [Unknown]
  - Dizziness exertional [Unknown]
  - Fatigue [Unknown]
  - Wheezing [Recovering/Resolving]
  - Conjunctival pallor [Recovered/Resolved]
  - Pallor [Unknown]
  - Dyspnoea exertional [Unknown]
  - Stridor [Unknown]
  - Hilar lymphadenopathy [Unknown]
  - Disease progression [Unknown]
  - Pulmonary mass [Unknown]
  - Atelectasis [Unknown]
  - Dysphagia [Unknown]
  - Chest discomfort [Unknown]
  - Alopecia [Unknown]
  - Nausea [Unknown]
  - Decreased appetite [Unknown]
  - Wheelchair user [Unknown]
  - Anaemia [Unknown]
  - White blood cell count decreased [Unknown]
  - Neutrophil count decreased [Unknown]
  - Chills [Unknown]
  - Hypersomnia [Unknown]
  - Oligodipsia [Unknown]
  - Epistaxis [Unknown]
  - Blood blister [Unknown]
  - Rash macular [Unknown]
  - Emotional distress [Unknown]
  - Rales [Unknown]
  - Rhonchi [Unknown]
  - Balance disorder [Unknown]
  - Tachycardia [Unknown]
  - Therapeutic response unexpected [Unknown]
